FAERS Safety Report 17588120 (Version 1)
Quarter: 2020Q1

REPORT INFORMATION
  Report Type: Spontaneous
  Country: JP (occurrence: JP)
  Receive Date: 20200327
  Receipt Date: 20200327
  Transmission Date: 20200409
  Serious: Yes (Death, Hospitalization, Other)
  Sender: FDA-Public Use
  Company Number: JP-ELI_LILLY_AND_COMPANY-JP202001012964

PATIENT
  Age: 62 Year
  Sex: Female
  Weight: 47 kg

DRUGS (8)
  1. DENOTAS [Concomitant]
     Active Substance: CALCIUM CARBONATE\CHOLECALCIFEROL\MAGNESIUM CARBONATE
     Dosage: 2 DOSAGE FORM, DAILY
     Route: 048
     Dates: start: 20191216, end: 20200126
  2. BIO-THREE [Concomitant]
     Active Substance: HERBALS
     Indication: PROPHYLAXIS
     Dosage: 1 DOSAGE FORM, TID
     Route: 048
     Dates: start: 20200107, end: 20200126
  3. LOPERAMIDE [Concomitant]
     Active Substance: LOPERAMIDE
     Indication: PROPHYLAXIS
     Dosage: 1 MG, PRN
     Route: 048
     Dates: start: 20200107, end: 20200126
  4. REBAMIPIDE [Concomitant]
     Active Substance: REBAMIPIDE
     Dosage: 100 MG, TID
     Route: 048
     Dates: start: 20191216, end: 20200126
  5. HANGESHASHINTO [COPTIS SPP. RHIZOME;GLYCYRRHI [Concomitant]
     Active Substance: HERBALS
     Indication: PROPHYLAXIS
     Dosage: 2.5 G, TID
     Route: 048
     Dates: start: 20200107, end: 20200126
  6. LOXOPROFEN [Concomitant]
     Active Substance: LOXOPROFEN
     Dosage: 60 MG, TID
     Route: 048
     Dates: start: 20191216, end: 20200126
  7. VERZENIO [Suspect]
     Active Substance: ABEMACICLIB
     Indication: BREAST CANCER RECURRENT
     Dosage: 150 MG, BID
     Route: 048
     Dates: start: 20200107, end: 20200126
  8. LETROZOLE. [Concomitant]
     Active Substance: LETROZOLE
     Indication: BREAST CANCER RECURRENT
     Dosage: 2.5 MG, DAILY
     Route: 048
     Dates: start: 20200107, end: 20200126

REACTIONS (4)
  - Malignant neoplasm progression [Fatal]
  - Device related infection [Unknown]
  - Lung disorder [Fatal]
  - Dyspnoea [Fatal]

NARRATIVE: CASE EVENT DATE: 20200121
